FAERS Safety Report 12404814 (Version 8)
Quarter: 2018Q3

REPORT INFORMATION
  Report Type: Spontaneous
  Country: US (occurrence: US)
  Receive Date: 20160525
  Receipt Date: 20180822
  Transmission Date: 20181010
  Serious: Yes (Hospitalization)
  Sender: FDA-Public Use
  Company Number: US-JNJFOC-20160516533

PATIENT
  Sex: Male
  Weight: 88.45 kg

DRUGS (4)
  1. MAALOX ANTACID [Concomitant]
     Active Substance: ALUMINUM HYDROXIDE\DIMETHICONE\MAGNESIUM HYDROXIDE
     Route: 065
  2. VITAMIN B COMPLEX [Concomitant]
     Active Substance: CYANOCOBALAMIN\DEXPANTHENOL\NIACINAMIDE\PYRIDOXINE HYDROCHLORIDE\RIBOFLAVIN 5^-PHOSPHATE SODIUM\THIAMINE HYDROCHLORIDE\VITAMIN B COMPLEX
     Route: 065
  3. TUMS [Concomitant]
     Active Substance: CALCIUM CARBONATE
     Route: 065
  4. LEVAQUIN [Suspect]
     Active Substance: LEVOFLOXACIN
     Indication: PNEUMONIA
     Route: 048
     Dates: start: 2015, end: 2015

REACTIONS (12)
  - Neuropathy peripheral [Not Recovered/Not Resolved]
  - Limb discomfort [Not Recovered/Not Resolved]
  - Back disorder [Unknown]
  - Limb injury [Recovered/Resolved]
  - Gait disturbance [Not Recovered/Not Resolved]
  - Plantar fasciitis [Not Recovered/Not Resolved]
  - Arrhythmia [Unknown]
  - Tendon rupture [Not Recovered/Not Resolved]
  - Cardiac disorder [Unknown]
  - Atrial fibrillation [Unknown]
  - Muscular weakness [Unknown]
  - Memory impairment [Unknown]

NARRATIVE: CASE EVENT DATE: 2015
